FAERS Safety Report 7902457-8 (Version None)
Quarter: 2011Q4

REPORT INFORMATION
  Report Type: 
  Country: None (occurrence: None)
  Receive Date: 20111108
  Receipt Date: 20111101
  Transmission Date: 20120403
  Serious: Yes (Other)
  Sender: FDA-Public Use
  Company Number: US-CELGENEUS-163-20785-11081223

PATIENT
  Sex: Female

DRUGS (6)
  1. PREDNISONE [Concomitant]
     Dosage: 10 MILLIGRAM
     Route: 065
     Dates: start: 20110606
  2. LIPITOR [Concomitant]
     Route: 065
  3. THALOMID [Suspect]
     Indication: MYELOFIBROSIS
     Dosage: 50 MILLIGRAM
     Route: 048
     Dates: start: 20110309, end: 20110606
  4. PREDNISONE [Concomitant]
     Dosage: 15 MILLIGRAM
     Route: 065
     Dates: start: 20110504, end: 20110606
  5. PREDNISONE [Concomitant]
     Dosage: 50MG ALTER 25MG
     Route: 065
     Dates: start: 20110404, end: 20110504
  6. PREDNISONE [Concomitant]
     Dosage: 50 MILLIGRAM
     Route: 065
     Dates: start: 20110316, end: 20110404

REACTIONS (3)
  - THROMBOCYTOPENIA [None]
  - THROAT TIGHTNESS [None]
  - THROAT IRRITATION [None]
